FAERS Safety Report 20956963 (Version 2)
Quarter: 2022Q2

REPORT INFORMATION
  Report Type: Spontaneous
  Country: SI (occurrence: SI)
  Receive Date: 20220614
  Receipt Date: 20220614
  Transmission Date: 20220721
  Serious: Yes (Other)
  Sender: FDA-Public Use
  Company Number: SI-MLMSERVICE-20220527-3583761-1

PATIENT
  Age: 36 Year
  Sex: Female

DRUGS (4)
  1. METHYLPREDNISOLONE [Suspect]
     Active Substance: METHYLPREDNISOLONE
     Indication: Pyoderma gangrenosum
     Dosage: 48 MG, 1X/DAY
     Route: 048
  2. METHYLPREDNISOLONE [Suspect]
     Active Substance: METHYLPREDNISOLONE
     Dosage: SLOW TAPERING
     Route: 048
  3. BETAMETHASONE VALERATE\GENTAMICIN SULFATE [Suspect]
     Active Substance: BETAMETHASONE VALERATE\GENTAMICIN SULFATE
     Indication: Pyoderma gangrenosum
     Dosage: UNK
     Route: 061
  4. DOXYCYCLINE [Concomitant]
     Active Substance: DOXYCYCLINE
     Indication: Hidradenitis
     Dosage: 100 MG, 1X/DAY
     Route: 048

REACTIONS (4)
  - Panic disorder [Recovering/Resolving]
  - Weight increased [Recovered/Resolved]
  - Hypertension [Recovering/Resolving]
  - Condition aggravated [Recovering/Resolving]
